FAERS Safety Report 8528069 (Version 3)
Quarter: 2012Q4

REPORT INFORMATION
  Report Type: 
  Country: US (occurrence: US)
  Receive Date: 20120424
  Receipt Date: 20121004
  Transmission Date: 20130627
  Serious: Yes (Hospitalization, Other)
  Sender: FDA-Public Use
  Company Number: US-JNJFOC-20120301014

PATIENT
  Age: 63 None
  Sex: Female
  Weight: 80.9 kg

DRUGS (5)
  1. MINOXIDIL [Suspect]
     Route: 065
  2. MINOXIDIL [Suspect]
     Indication: PRODUCT USED FOR UNKNOWN INDICATION
     Route: 065
     Dates: start: 201201
  3. PEPCID [Concomitant]
     Route: 048
  4. ADVAIR [Concomitant]
     Dosage: 250/50mcg
     Route: 055
  5. NORVASC [Concomitant]
     Route: 048

REACTIONS (2)
  - Thermal burn [Unknown]
  - Injury [Unknown]
